FAERS Safety Report 10156765 (Version 1)
Quarter: 2014Q2

REPORT INFORMATION
  Report Type: Spontaneous
  Country: ES (occurrence: None)
  Receive Date: 20140505
  Receipt Date: 20140505
  Transmission Date: 20141212
  Serious: Yes (Hospitalization)
  Sender: FDA-Public Use
  Company Number: 2014P1003577

PATIENT
  Age: 78 Year
  Sex: Female

DRUGS (3)
  1. LITHIUM [Suspect]
     Indication: SCHIZOAFFECTIVE DISORDER
  2. LEVODOPA [Suspect]
     Indication: PARKINSONISM
  3. ARIPRIPAZOLE [Concomitant]

REACTIONS (11)
  - Psychomotor hyperactivity [None]
  - Mutism [None]
  - Cogwheel rigidity [None]
  - Myoclonus [None]
  - Cerebral atrophy [None]
  - Blood alkaline phosphatase increased [None]
  - Toxicity to various agents [None]
  - Antipsychotic drug level above therapeutic [None]
  - Haemodialysis [None]
  - Bradyphrenia [None]
  - Electroencephalogram abnormal [None]
